FAERS Safety Report 4611825-1 (Version None)
Quarter: 2005Q2

REPORT INFORMATION
  Report Type: 
  Country: None (occurrence: None)
  Receive Date: 20050308
  Receipt Date: 20050114
  Transmission Date: 20051028
  Serious: Yes (Other)
  Sender: FDA-Public Use
  Company Number: 2005UW00730

PATIENT
  Age: 80 Year
  Sex: Female
  Weight: 50.802 kg

DRUGS (7)
  1. CRESTOR [Suspect]
     Indication: BLOOD CHOLESTEROL INCREASED
     Dosage: 10 MG PO
     Route: 048
  2. SINGULAIR [Concomitant]
  3. SPIRIVA [Concomitant]
  4. SYNTHROID [Concomitant]
  5. EVISTA [Concomitant]
  6. FORADIL [Concomitant]
  7. COMBIVENT [Concomitant]

REACTIONS (2)
  - CONSTIPATION [None]
  - HAEMORRHOIDAL HAEMORRHAGE [None]
